FAERS Safety Report 26014522 (Version 2)
Quarter: 2025Q4

REPORT INFORMATION
  Report Type: Spontaneous
  Country: JP (occurrence: JP)
  Receive Date: 20251108
  Receipt Date: 20251121
  Transmission Date: 20260117
  Serious: Yes (Death)
  Sender: SANDOZ
  Company Number: JP-asahikaseip-2025-AER-06628

PATIENT
  Age: 89 Year
  Sex: Female

DRUGS (1)
  1. RECLAST [Suspect]
     Active Substance: ZOLEDRONIC ACID
     Indication: Osteoporosis
     Dosage: 5 MG, Q12MO
     Route: 041
     Dates: start: 20251027, end: 20251027

REACTIONS (4)
  - Myocardial infarction [Fatal]
  - Blood calcium abnormal [Not Recovered/Not Resolved]
  - Blood potassium abnormal [Not Recovered/Not Resolved]
  - Renal impairment [Not Recovered/Not Resolved]

NARRATIVE: CASE EVENT DATE: 20251027
